FAERS Safety Report 5242460-2 (Version None)
Quarter: 2007Q1

REPORT INFORMATION
  Report Type: 
  Country: None (occurrence: None)
  Receive Date: 20070214
  Receipt Date: 20070205
  Transmission Date: 20070707
  Serious: Yes (Hospitalization, Other)
  Sender: FDA-Public Use
  Company Number: 2005BI009291

PATIENT
  Age: 61 Year
  Sex: Female

DRUGS (17)
  1. AVONEX [Suspect]
     Indication: MULTIPLE SCLEROSIS
     Dosage: 30 UG;QW;IM
     Route: 030
     Dates: start: 19990409, end: 20040101
  2. AVONEX [Suspect]
     Indication: MULTIPLE SCLEROSIS
     Dosage: 30 UG;QW;IM
     Route: 030
     Dates: start: 20040101
  3. FOSOMAX [Concomitant]
  4. TOPROL-XL [Concomitant]
  5. PRILOSEC [Concomitant]
  6. ZOCOR [Concomitant]
  7. DIOVAN [Concomitant]
  8. CLONIDINE [Concomitant]
  9. BEXTRA [Concomitant]
  10. XANAX [Concomitant]
  11. DARVOCET-N 100 [Concomitant]
  12. SOMA [Concomitant]
  13. LIPITOR [Concomitant]
  14. PROVIGIL [Concomitant]
  15. CATAPRES [Concomitant]
  16. PROTONIX [Concomitant]
  17. ASPIRIN [Concomitant]

REACTIONS (17)
  - ARTHRITIS [None]
  - BACK PAIN [None]
  - CARDIOLIPIN ANTIBODY POSITIVE [None]
  - CEREBROVASCULAR ACCIDENT [None]
  - CONTUSION [None]
  - FALL [None]
  - HAEMATURIA [None]
  - HYPERCHOLESTEROLAEMIA [None]
  - HYPERLIPIDAEMIA [None]
  - HYPERTENSION [None]
  - HYSTERECTOMY [None]
  - INTERVERTEBRAL DISC PROTRUSION [None]
  - MEMORY IMPAIRMENT [None]
  - OSTEOPOROSIS [None]
  - RADICULOPATHY [None]
  - SYNCOPE [None]
  - TRIGEMINAL NEURALGIA [None]
